FAERS Safety Report 12574208 (Version 2)
Quarter: 2016Q3

REPORT INFORMATION
  Report Type: Spontaneous
  Country: US (occurrence: US)
  Receive Date: 20160720
  Receipt Date: 20160908
  Transmission Date: 20161109
  Serious: Yes (Other)
  Sender: FDA-Public Use
  Company Number: US-TEVA-671077USA

PATIENT
  Sex: Female

DRUGS (3)
  1. ZANAFLEX [Concomitant]
     Active Substance: TIZANIDINE HYDROCHLORIDE
  2. NEXIUM [Concomitant]
     Active Substance: ESOMEPRAZOLE MAGNESIUM
  3. ZECUITY [Suspect]
     Active Substance: SUMATRIPTAN SUCCINATE
     Indication: HEADACHE
     Route: 062

REACTIONS (20)
  - Application site erythema [Recovered/Resolved]
  - Application site exfoliation [Recovered/Resolved]
  - Application site paraesthesia [Recovered/Resolved]
  - Application site scar [Recovered/Resolved]
  - Application site vesicles [Recovered/Resolved]
  - Application site discolouration [Not Recovered/Not Resolved]
  - Application site papules [Recovered/Resolved]
  - Application site urticaria [Recovered/Resolved]
  - Wrong technique in product usage process [Unknown]
  - Application site pruritus [Recovered/Resolved]
  - Application site warmth [Recovered/Resolved]
  - Swollen tongue [Recovered/Resolved]
  - Application site pain [Recovered/Resolved]
  - Application site scab [Recovered/Resolved]
  - Application site erosion [Recovered/Resolved]
  - Application site discomfort [Recovered/Resolved]
  - Drug effect incomplete [Unknown]
  - Throat tightness [Recovered/Resolved]
  - Application site burn [Recovered/Resolved]
  - Application site irritation [Recovered/Resolved]
